FAERS Safety Report 16831515 (Version 4)
Quarter: 2019Q4

REPORT INFORMATION
  Report Type: Report from Study
  Country: FR (occurrence: FR)
  Receive Date: 20190920
  Receipt Date: 20191206
  Transmission Date: 20200122
  Serious: Yes (Hospitalization, Other)
  Sender: FDA-Public Use
  Company Number: FR-ROCHE-2398422

PATIENT
  Age: 64 Year
  Sex: Male
  Weight: 68.7 kg

DRUGS (19)
  1. ACTISKENAN [Concomitant]
     Active Substance: MORPHINE SULFATE
     Indication: PAIN
     Route: 065
  2. PRIMPERAN [Concomitant]
     Active Substance: METOCLOPRAMIDE HYDROCHLORIDE
     Indication: PROPHYLAXIS
     Route: 065
     Dates: start: 20190822
  3. MESTINON [Concomitant]
     Active Substance: PYRIDOSTIGMINE BROMIDE
     Route: 065
     Dates: start: 20190917
  4. HALDOL [Concomitant]
     Active Substance: HALOPERIDOL
     Route: 065
     Dates: start: 20190925
  5. TAMSULOSINE [TAMSULOSIN] [Concomitant]
     Active Substance: TAMSULOSIN
     Route: 065
  6. ATEZOLIZUMAB. [Suspect]
     Active Substance: ATEZOLIZUMAB
     Indication: TRANSITIONAL CELL CARCINOMA
     Route: 042
     Dates: start: 20190911, end: 20190911
  7. PHLOROGLUCINOL [Concomitant]
     Active Substance: PHLOROGLUCINOL
     Indication: PROPHYLAXIS
     Route: 065
     Dates: start: 20190911, end: 20190916
  8. ATEZOLIZUMAB. [Suspect]
     Active Substance: ATEZOLIZUMAB
     Indication: NON-SMALL CELL LUNG CANCER
     Dosage: DATE OF MOST RECENT DOSE (1200 MG) OF ATEZOLIZUMAB PRIOR TO SAE: 12/AUG/2019
     Route: 041
     Dates: start: 20190812, end: 20190812
  9. METHYLPREDNISOLONE. [Concomitant]
     Active Substance: METHYLPREDNISOLONE
     Indication: DEEP VEIN THROMBOSIS
     Route: 065
     Dates: start: 20190925
  10. FORLAX [MACROGOL 4000] [Concomitant]
     Active Substance: POLYETHYLENE GLYCOL 4000
     Indication: PROPHYLAXIS
     Route: 065
     Dates: start: 20190911
  11. METHYLPREDNISOLON [METHYLPREDNISOLONE] [Concomitant]
     Active Substance: METHYLPREDNISOLONE
     Route: 065
     Dates: start: 20190925
  12. HYPNOVEL [MIDAZOLAM] [Concomitant]
     Route: 065
     Dates: start: 20190926, end: 20191002
  13. SCOBUREN [Concomitant]
     Active Substance: BUTYLSCOPOLAMINE
     Route: 065
     Dates: start: 20190930, end: 20191001
  14. PANTOPRAZOLE [Concomitant]
     Active Substance: PANTOPRAZOLE
     Indication: PROPHYLAXIS
     Route: 065
     Dates: start: 20190715
  15. PARACETAMOL [Concomitant]
     Active Substance: ACETAMINOPHEN
     Indication: PAIN
     Route: 065
     Dates: start: 20190715
  16. SPASFON [PHLOROGLUCINOL;TRIMETHYLPHLOROGLUCINOL] [Concomitant]
     Active Substance: PHLOROGLUCINOL\1,3,5-TRIMETHOXYBENZENE
     Indication: PROPHYLAXIS
     Route: 065
     Dates: start: 20190821
  17. LYRICA [Concomitant]
     Active Substance: PREGABALIN
     Route: 065
     Dates: start: 20190822
  18. OCTREOTIDE. [Concomitant]
     Active Substance: OCTREOTIDE
     Route: 065
     Dates: start: 20190924
  19. SKENAN [Concomitant]
     Active Substance: MORPHINE SULFATE
     Indication: PAIN
     Route: 065

REACTIONS (3)
  - Deep vein thrombosis [Not Recovered/Not Resolved]
  - Pyrexia [Recovered/Resolved]
  - Pleural effusion [Not Recovered/Not Resolved]

NARRATIVE: CASE EVENT DATE: 20190815
